FAERS Safety Report 25803620 (Version 1)
Quarter: 2025Q3

REPORT INFORMATION
  Report Type: Spontaneous
  Country: CN (occurrence: CN)
  Receive Date: 20250915
  Receipt Date: 20250915
  Transmission Date: 20251021
  Serious: Yes (Other)
  Sender: BAYER HEALTHCARE PHARMACEUTICALS INC.
  Company Number: CN-BAYER-2025A121920

PATIENT
  Age: 49 Year
  Sex: Male
  Weight: 79 kg

DRUGS (2)
  1. ULTRAVIST [Suspect]
     Active Substance: IOPROMIDE
     Indication: Computerised tomogram
     Route: 042
     Dates: start: 20250904, end: 20250904
  2. ULTRAVIST [Suspect]
     Active Substance: IOPROMIDE
     Indication: Renal cancer

REACTIONS (5)
  - Contrast media allergy [Recovering/Resolving]
  - Blood pressure decreased [Recovering/Resolving]
  - Conjunctival oedema [Recovering/Resolving]
  - Dysphonia [Recovering/Resolving]
  - Conjunctival hyperaemia [None]

NARRATIVE: CASE EVENT DATE: 20250904
